FAERS Safety Report 17597729 (Version 1)
Quarter: 2020Q1

REPORT INFORMATION
  Report Type: Spontaneous
  Country: US (occurrence: US)
  Receive Date: 20200327
  Receipt Date: 20200327
  Transmission Date: 20200409
  Serious: No
  Sender: FDA-Public Use
  Company Number: None

PATIENT
  Age: 56 Year
  Sex: Male
  Weight: 122.7 kg

DRUGS (1)
  1. SIMPONI [Suspect]
     Active Substance: GOLIMUMAB
     Indication: SPONDYLOARTHROPATHY
     Dosage: ?          OTHER FREQUENCY:EVERY 4 WEEKS;?
     Route: 041
     Dates: start: 20200107

REACTIONS (2)
  - Throat irritation [None]
  - Chest pain [None]

NARRATIVE: CASE EVENT DATE: 20200204
